FAERS Safety Report 5219642-9 (Version None)
Quarter: 2006Q4

REPORT INFORMATION
  Report Type: 
  Country: None (occurrence: None)
  Receive Date: 20061201
  Receipt Date: 20060705
  Transmission Date: 20070319
  Serious: No
  Sender: FDA-Public Use
  Company Number: 2006PV016955

PATIENT
  Age: 65 Year
  Sex: Female
  Weight: 135.1719 kg

DRUGS (4)
  1. BYETTA [Suspect]
     Indication: DIABETES MELLITUS NON-INSULIN-DEPENDENT
     Dosage: 5 MCG;BID;SC
     Route: 058
     Dates: start: 20060506
  2. STARLIX [Concomitant]
  3. ACTOS [Concomitant]
  4. GLUCOTROL [Concomitant]

REACTIONS (9)
  - BLOOD GLUCOSE DECREASED [None]
  - DECREASED APPETITE [None]
  - FALL [None]
  - HYPERHIDROSIS [None]
  - INJECTION SITE BRUISING [None]
  - MALAISE [None]
  - TREMOR [None]
  - VISION BLURRED [None]
  - WEIGHT DECREASED [None]
